FAERS Safety Report 4344662-6 (Version None)
Quarter: 2004Q2

REPORT INFORMATION
  Report Type: 
  Country: None (occurrence: None)
  Receive Date: 20040421
  Receipt Date: 20040416
  Transmission Date: 20050107
  Serious: Yes (Death, Hospitalization)
  Sender: FDA-Public Use
  Company Number: 04-04-0563

PATIENT
  Age: 51 Year
  Sex: Male

DRUGS (1)
  1. CLOZAPINE [Suspect]
     Indication: SCHIZOAFFECTIVE DISORDER
     Dosage: 25 MG QD ORAL
     Route: 048
     Dates: start: 20030301, end: 20040401

REACTIONS (2)
  - CARDIAC ARREST [None]
  - PNEUMONIA [None]
